FAERS Safety Report 8429716-7 (Version None)
Quarter: 2012Q2

REPORT INFORMATION
  Report Type: 
  Country: None (occurrence: None)
  Receive Date: 20120516
  Receipt Date: 20120504
  Transmission Date: 20120825
  Serious: Yes (Hospitalization)
  Sender: FDA-Public Use
  Company Number: 2012PROUSA01278

PATIENT
  Age: 78 Year
  Sex: Male
  Weight: 76.7 kg

DRUGS (15)
  1. BENICAR [Concomitant]
  2. LORAZEPAM [Concomitant]
  3. MULTAQ [Concomitant]
  4. NITROFURANTOIN MONOHYDRATE/MACROCRYSTALS (NITROFURANTOIN MONOHYDRATE) [Concomitant]
  5. LUPRON [Concomitant]
  6. PROCHLORPERAZINE MALEATE (PROCHLORPERAZINE MALEATE) [Concomitant]
  7. UROCIT-K [Concomitant]
  8. NYSTATIN [Concomitant]
  9. POTASSIUM CHLORIDE [Concomitant]
  10. PROVENGE [Suspect]
     Indication: PROSTATE CANCER METASTATIC
     Dosage: 250 ML, SINGLE, INTRAVENOUS
     Route: 042
     Dates: start: 20120402, end: 20120402
  11. FUROSEMIDE [Concomitant]
  12. CRESTOR [Concomitant]
  13. DIGOXIN [Concomitant]
  14. LEVOTHYROXINE SODIUM [Concomitant]
  15. ZANTAC [Concomitant]

REACTIONS (9)
  - DEHYDRATION [None]
  - ORAL CANDIDIASIS [None]
  - SMALL INTESTINAL OBSTRUCTION [None]
  - HYPERTENSION [None]
  - NAUSEA [None]
  - VOMITING [None]
  - GASTROINTESTINAL INFECTION [None]
  - CONDITION AGGRAVATED [None]
  - ATRIAL FIBRILLATION [None]
